FAERS Safety Report 6196828-0 (Version None)
Quarter: 2009Q2

REPORT INFORMATION
  Report Type: 
  Country: None (occurrence: None)
  Receive Date: 20090520
  Receipt Date: 20090513
  Transmission Date: 20091009
  Serious: Yes (Hospitalization)
  Sender: FDA-Public Use
  Company Number: JP-WATSON-2009-03407

PATIENT
  Age: 34 Year
  Sex: Female

DRUGS (1)
  1. HYDROXYZINE HCL [Suspect]
     Indication: PRURIGO
     Dosage: 75 MG, DAILY
     Route: 048
     Dates: start: 20080101

REACTIONS (3)
  - ELECTROCARDIOGRAM QT PROLONGED [None]
  - SYNCOPE [None]
  - TORSADE DE POINTES [None]
